FAERS Safety Report 8014362-X (Version None)
Quarter: 2011Q4

REPORT INFORMATION
  Report Type: 
  Country: None (occurrence: None)
  Receive Date: 20111229
  Receipt Date: 20111223
  Transmission Date: 20120403
  Serious: Yes (Hospitalization)
  Sender: FDA-Public Use
  Company Number: PHEH2011US05155

PATIENT
  Sex: Female
  Weight: 78.912 kg

DRUGS (1)
  1. GILENYA [Suspect]
     Dosage: 0.5 MG, QD
     Route: 048
     Dates: start: 20110408

REACTIONS (2)
  - PNEUMONIA [None]
  - PERIPHERAL ISCHAEMIA [None]
